FAERS Safety Report 17767831 (Version 1)
Quarter: 2020Q2

REPORT INFORMATION
  Report Type: Spontaneous
  Country: CA (occurrence: CA)
  Receive Date: 20200511
  Receipt Date: 20200511
  Transmission Date: 20200714
  Serious: Yes (Death, Hospitalization)
  Sender: FDA-Public Use
  Company Number: CA-NAPPMUNDI-CAN-2020-0011035

PATIENT
  Age: 23 Year
  Sex: Male

DRUGS (4)
  1. CODEINE [Suspect]
     Active Substance: CODEINE
     Indication: PRODUCT USED FOR UNKNOWN INDICATION
     Dosage: UNK
     Route: 065
  2. OXYCODONE HYDROCHLORIDE. [Suspect]
     Active Substance: OXYCODONE HYDROCHLORIDE
     Indication: PRODUCT USED FOR UNKNOWN INDICATION
     Dosage: UNK
     Route: 065
  3. CARBAMAZEPINE. [Suspect]
     Active Substance: CARBAMAZEPINE
     Indication: PRODUCT USED FOR UNKNOWN INDICATION
     Dosage: UNK
     Route: 065
  4. HEROIN [Suspect]
     Active Substance: DIAMORPHINE
     Indication: PRODUCT USED FOR UNKNOWN INDICATION
     Dosage: UNK
     Route: 065

REACTIONS (14)
  - General physical health deterioration [Fatal]
  - Intentional overdose [Fatal]
  - Seizure [Fatal]
  - Loss of consciousness [Fatal]
  - Suicide attempt [Fatal]
  - Bipolar disorder [Fatal]
  - Malaise [Fatal]
  - Underweight [Fatal]
  - Drug dependence [Fatal]
  - Depression [Fatal]
  - Life support [Fatal]
  - Anxiety [Fatal]
  - Drug abuse [Fatal]
  - Tremor [Fatal]
